FAERS Safety Report 16080089 (Version 2)
Quarter: 2019Q3

REPORT INFORMATION
  Report Type: Spontaneous
  Country: JP (occurrence: JP)
  Receive Date: 20190315
  Receipt Date: 20190708
  Transmission Date: 20191004
  Serious: Yes (Other)
  Sender: FDA-Public Use
  Company Number: JP-SEATTLE GENETICS-2019SGN00739

PATIENT
  Age: 77 Year
  Sex: Male
  Weight: 50 kg

DRUGS (9)
  1. DACARBAZINE. [Concomitant]
     Active Substance: DACARBAZINE
     Dosage: 380 MILLIGRAM, Q2WEEKS
     Route: 041
     Dates: start: 20190225, end: 20190225
  2. HYDROCORTONE                       /00028603/ [Concomitant]
     Active Substance: HYDROCORTISONE SODIUM PHOSPHATE
     Dosage: 100 MILLIGRAM, QD
     Route: 042
     Dates: start: 20190223, end: 20190225
  3. ADCETRIS [Suspect]
     Active Substance: BRENTUXIMAB VEDOTIN
     Indication: HODGKIN^S DISEASE
     Dosage: 1.2 MILLIGRAM/KILOGRAM, Q14D
     Route: 041
     Dates: start: 20190223
  4. EXAL [Concomitant]
     Indication: HODGKIN^S DISEASE
     Dosage: 6 MILLIGRAM, Q2WEEKS
     Route: 041
     Dates: start: 20190225, end: 20190225
  5. DACARBAZINE. [Concomitant]
     Active Substance: DACARBAZINE
     Indication: HODGKIN^S DISEASE
     Dosage: UNK
     Route: 041
     Dates: start: 20190223
  6. HYDROCORTONE                       /00028603/ [Concomitant]
     Active Substance: HYDROCORTISONE SODIUM PHOSPHATE
     Dosage: 100 MILLIGRAM, QD
     Route: 042
  7. ALOXI [Concomitant]
     Active Substance: PALONOSETRON HYDROCHLORIDE
     Indication: PROPHYLAXIS OF NAUSEA AND VOMITING
     Dosage: 0.75 MILLIGRAM, QD
     Route: 042
     Dates: start: 20190225, end: 20190225
  8. CEFTRIAXONE SODIUM. [Concomitant]
     Active Substance: CEFTRIAXONE SODIUM
     Dosage: 2 GRAM, QD
     Route: 042
     Dates: start: 20190222, end: 20190225
  9. ADCETRIS [Suspect]
     Active Substance: BRENTUXIMAB VEDOTIN
     Dosage: 60 MILLIGRAM, Q14D
     Route: 041
     Dates: start: 20190225, end: 20190225

REACTIONS (2)
  - Liver disorder [Unknown]
  - Cardiac failure [Recovered/Resolved]

NARRATIVE: CASE EVENT DATE: 20190226
